FAERS Safety Report 24607270 (Version 1)
Quarter: 2024Q4

REPORT INFORMATION
  Report Type: Spontaneous
  Country: CN (occurrence: CN)
  Receive Date: 20241112
  Receipt Date: 20241112
  Transmission Date: 20250114
  Serious: Yes (Other)
  Sender: MARKSANS PHARMA LIMITED
  Company Number: US-MARKSANS PHARMA LIMITED-MPL202400083

PATIENT

DRUGS (2)
  1. METFORMIN HYDROCHLORIDE [Suspect]
     Active Substance: METFORMIN HYDROCHLORIDE
     Indication: Type 2 diabetes mellitus
     Dosage: UNK
     Route: 065
  2. VISEPEGENATIDE [Suspect]
     Active Substance: VISEPEGENATIDE
     Indication: Type 2 diabetes mellitus
     Dosage: 150 MICROGRAM, ONCE WEEKLY
     Route: 058

REACTIONS (2)
  - Pancreatitis acute [Recovered/Resolved]
  - Diabetes mellitus inadequate control [Unknown]
